FAERS Safety Report 11461264 (Version 1)
Quarter: 2015Q3

REPORT INFORMATION
  Report Type: Spontaneous
  Country: US (occurrence: US)
  Receive Date: 20150831
  Receipt Date: 20150831
  Transmission Date: 20151125
  Serious: No
  Sender: FDA-Public Use
  Company Number: US-ELI_LILLY_AND_COMPANY-US201002006481

PATIENT
  Sex: Female
  Weight: 56.69 kg

DRUGS (10)
  1. SERTRALINE [Concomitant]
     Active Substance: SERTRALINE HYDROCHLORIDE
     Indication: DEPRESSION
     Dosage: 80 MG, DAILY (1/D)
     Route: 048
     Dates: start: 2008
  2. TYLENOL EXTRA STRENGTH [Concomitant]
     Active Substance: ACETAMINOPHEN
  3. PRANDIN [Concomitant]
     Active Substance: REPAGLINIDE
  4. FLAXSEED [Concomitant]
     Active Substance: FLAX SEED
  5. VITAMIN B12 [Concomitant]
     Active Substance: CYANOCOBALAMIN
  6. COD-LIVER OIL [Concomitant]
     Active Substance: FISH OIL
  7. TYLENOL ARTHRITIS PAIN [Concomitant]
     Active Substance: ACETAMINOPHEN
  8. MULTIVITAMIN [Concomitant]
     Active Substance: VITAMINS
  9. CYMBALTA [Suspect]
     Active Substance: DULOXETINE HYDROCHLORIDE
     Indication: DEPRESSION
     Route: 048
     Dates: end: 201001
  10. MELATONIN [Concomitant]
     Active Substance: MELATONIN

REACTIONS (5)
  - Dysphagia [Not Recovered/Not Resolved]
  - Weight decreased [Not Recovered/Not Resolved]
  - Sensation of foreign body [Not Recovered/Not Resolved]
  - Decreased appetite [Not Recovered/Not Resolved]
  - Choking [Not Recovered/Not Resolved]
